FAERS Safety Report 13520742 (Version 1)
Quarter: 2017Q2

REPORT INFORMATION
  Report Type: Spontaneous
  Country: US (occurrence: US)
  Receive Date: 20170508
  Receipt Date: 20170508
  Transmission Date: 20170830
  Serious: No
  Sender: FDA-Public Use
  Company Number: US-TEVA-737835ACC

PATIENT
  Sex: Female
  Weight: 87.62 kg

DRUGS (1)
  1. EPOPROSTENOL. [Suspect]
     Active Substance: EPOPROSTENOL
     Indication: PULMONARY ARTERIAL HYPERTENSION
     Dosage: 14NG/KG/MIN; 1.5MG VL
     Route: 042
     Dates: start: 20160916

REACTIONS (3)
  - Catheter site vesicles [Unknown]
  - Rash papular [Unknown]
  - Rash pruritic [Unknown]
